FAERS Safety Report 23202920 (Version 2)
Quarter: 2023Q4

REPORT INFORMATION
  Report Type: Report from Study
  Country: US (occurrence: US)
  Receive Date: 20231120
  Receipt Date: 20231201
  Transmission Date: 20240109
  Serious: Yes (Hospitalization)
  Sender: FDA-Public Use
  Company Number: US-REATA PHARMACEUTICALS INC.-2023USRTAOMA000142

PATIENT

DRUGS (2)
  1. SKYCLARYS [Suspect]
     Active Substance: OMAVELOXOLONE
     Indication: Friedreich^s ataxia
     Dosage: 150 MILLIGRAM, QD
     Route: 048
     Dates: start: 20230719
  2. SKYCLARYS [Suspect]
     Active Substance: OMAVELOXOLONE
     Dosage: 150 MILLIGRAM, QD
     Route: 048
     Dates: start: 20230719

REACTIONS (13)
  - COVID-19 [Unknown]
  - Pyrexia [Unknown]
  - Vertigo [Unknown]
  - Hepatic enzyme increased [None]
  - Dizziness [Unknown]
  - Hypotension [Unknown]
  - Heart rate increased [Unknown]
  - White blood cell count increased [Unknown]
  - Nasopharyngitis [Unknown]
  - Decreased appetite [Unknown]
  - Oropharyngeal pain [Unknown]
  - Abdominal pain [Unknown]
  - Product dose omission issue [Unknown]

NARRATIVE: CASE EVENT DATE: 20230101
